FAERS Safety Report 22619567 (Version 1)
Quarter: 2023Q2

REPORT INFORMATION
  Report Type: Spontaneous
  Country: US (occurrence: US)
  Receive Date: 20230620
  Receipt Date: 20230620
  Transmission Date: 20230722
  Serious: No
  Sender: FDA-Public Use
  Company Number: US-BRISTOL-MYERS SQUIBB COMPANY-2023-086429

PATIENT
  Age: 81 Year
  Sex: Male
  Weight: 74.84 kg

DRUGS (1)
  1. ONUREG [Suspect]
     Active Substance: AZACITIDINE
     Indication: Acute myeloid leukaemia
     Dosage: FREQUENCY: 2 WKS ON,2 WKS OFF
     Route: 048

REACTIONS (2)
  - Nausea [Unknown]
  - Anaemia [Unknown]
